FAERS Safety Report 20110934 (Version 2)
Quarter: 2021Q4

REPORT INFORMATION
  Report Type: Spontaneous
  Country: US (occurrence: US)
  Receive Date: 20211124
  Receipt Date: 20211129
  Transmission Date: 20220303
  Serious: Yes (Other)
  Sender: FDA-Public Use
  Company Number: US-UNITED THERAPEUTICS-UNT-2021-021634

PATIENT
  Sex: Male
  Weight: 72.562 kg

DRUGS (6)
  1. TYVASO [Suspect]
     Active Substance: TREPROSTINIL
     Indication: Pulmonary arterial hypertension
     Dosage: UNK
     Dates: start: 20210416
  2. TYVASO [Suspect]
     Active Substance: TREPROSTINIL
     Dosage: 18-54 ?G, QID
     Dates: start: 2021
  3. TYVASO [Suspect]
     Active Substance: TREPROSTINIL
     Dosage: UNK, TID
     Dates: start: 2021
  4. TYVASO [Suspect]
     Active Substance: TREPROSTINIL
     Dosage: UNK
     Dates: start: 2021
  5. OFEV [Suspect]
     Active Substance: NINTEDANIB
     Indication: Product used for unknown indication
     Dosage: 150 MG
     Route: 065
  6. OFEV [Suspect]
     Active Substance: NINTEDANIB
     Dosage: 100 MG, BID
     Route: 065

REACTIONS (7)
  - Nephrolithiasis [Unknown]
  - Productive cough [Unknown]
  - Muscle spasms [Unknown]
  - Abdominal distension [Unknown]
  - Diarrhoea [Not Recovered/Not Resolved]
  - Urethral pain [Unknown]
  - Post procedural complication [Unknown]

NARRATIVE: CASE EVENT DATE: 20210101
